FAERS Safety Report 9688360 (Version 2)
Quarter: 2013Q4

REPORT INFORMATION
  Report Type: Report from Study
  Country: GB (occurrence: GB)
  Receive Date: 20131114
  Receipt Date: 20131210
  Transmission Date: 20140711
  Serious: Yes (Death, Other)
  Sender: FDA-Public Use
  Company Number: GB-MERCK-1311GBR004782

PATIENT
  Sex: 0

DRUGS (1)
  1. FINASTERIDE [Suspect]
     Indication: PROSTATE CANCER
     Route: 048

REACTIONS (2)
  - Neoplasm malignant [Fatal]
  - Off label use [Unknown]
